FAERS Safety Report 13403654 (Version 1)
Quarter: 2017Q2

REPORT INFORMATION
  Report Type: Spontaneous
  Country: JP (occurrence: JP)
  Receive Date: 20170405
  Receipt Date: 20170405
  Transmission Date: 20170830
  Serious: Yes (Other)
  Sender: FDA-Public Use
  Company Number: ALJP2017JP000743

PATIENT

DRUGS (2)
  1. BESTRON [Concomitant]
     Indication: PRODUCT USED FOR UNKNOWN INDICATION
     Route: 065
  2. VEGAMOX OPHTHALMIC SOLUTION 0.5% [Suspect]
     Active Substance: MOXIFLOXACIN HYDROCHLORIDE
     Indication: PREOPERATIVE CARE
     Dosage: 1 GTT, TID
     Route: 047
     Dates: start: 20170325, end: 20170325

REACTIONS (1)
  - Blood pressure increased [Recovered/Resolved]

NARRATIVE: CASE EVENT DATE: 20170325
